FAERS Safety Report 23667295 (Version 1)
Quarter: 2024Q1

REPORT INFORMATION
  Report Type: Spontaneous
  Country: DE (occurrence: DE)
  Receive Date: 20240325
  Receipt Date: 20240325
  Transmission Date: 20240409
  Serious: Yes (Other)
  Sender: FDA-Public Use
  Company Number: DE-002147023-NVSC2024DE060388

PATIENT
  Age: 51 Year
  Sex: Female

DRUGS (1)
  1. AIMOVIG [Suspect]
     Active Substance: ERENUMAB-AOOE
     Indication: Migraine
     Dosage: UNK, Q4W (FOR ONE YEAR)
     Route: 065
     Dates: start: 2023

REACTIONS (2)
  - Acute myocardial infarction [Unknown]
  - Artery dissection [Unknown]

NARRATIVE: CASE EVENT DATE: 20240304
